FAERS Safety Report 4653265-5 (Version None)
Quarter: 2005Q2

REPORT INFORMATION
  Report Type: 
  Country: None (occurrence: None)
  Receive Date: 20050504
  Receipt Date: 20050504
  Transmission Date: 20051028
  Serious: Yes (Other)
  Sender: FDA-Public Use
  Company Number: None

PATIENT
  Sex: Male
  Weight: 90.8 kg

DRUGS (6)
  1. ZEVALIN - Y-90 - [Suspect]
     Indication: LYMPHOMA
     Dosage: 48MC, IV , ONCE
     Route: 042
     Dates: start: 20050405
  2. BUSPAR [Concomitant]
  3. DIOVAN [Concomitant]
  4. CLARITIN-D [Concomitant]
  5. MVT [Concomitant]
  6. ECHINACEA [Concomitant]

REACTIONS (2)
  - INCORRECT DOSE ADMINISTERED [None]
  - PLATELET DISORDER [None]
